FAERS Safety Report 5125595-4 (Version None)
Quarter: 2006Q4

REPORT INFORMATION
  Report Type: 
  Country: None (occurrence: None)
  Receive Date: 20061006
  Receipt Date: 20060926
  Transmission Date: 20070319
  Serious: Yes (Hospitalization, Disabling)
  Sender: FDA-Public Use
  Company Number: HQWYE723210APR06

PATIENT
  Age: 29 Year
  Sex: Female
  Weight: 90.8 kg

DRUGS (6)
  1. PROTONIX [Suspect]
     Indication: GASTROOESOPHAGEAL REFLUX DISEASE
     Dosage: 40 MG 1X PER 1 DAY, ORAL
     Route: 048
     Dates: start: 20051101
  2. WELLBUTRIN XL [Concomitant]
  3. FLEXERIL [Concomitant]
  4. HYDROCODONE (HYDROCODONE) [Concomitant]
  5. CYANOCOBALAMIN [Concomitant]
  6. GLUCOPHAGE [Concomitant]

REACTIONS (6)
  - APHASIA [None]
  - DRUG SCREEN FALSE POSITIVE [None]
  - HEMIPARESIS [None]
  - HEMIPLEGIA [None]
  - HYPOAESTHESIA [None]
  - MUSCULAR WEAKNESS [None]
